FAERS Safety Report 9687868 (Version 1)
Quarter: 2013Q4

REPORT INFORMATION
  Report Type: Spontaneous
  Country: GB (occurrence: None)
  Receive Date: 20131112
  Receipt Date: 20131112
  Transmission Date: 20140711
  Serious: Yes (Hospitalization)
  Sender: FDA-Public Use
  Company Number: AUR-APL-2013-09323

PATIENT
  Age: 78 Year
  Sex: Female
  Weight: 59 kg

DRUGS (3)
  1. ALENDRONIC ACID [Suspect]
     Indication: OSTEOPOROSIS PROPHYLAXIS
     Route: 048
     Dates: start: 20131006
  2. AMITRIPTYLINE (AMITRIPTYLINE) [Concomitant]
  3. WARFARIN (WARFARIN) [Concomitant]

REACTIONS (1)
  - Barrett^s oesophagus [None]
